FAERS Safety Report 4854785-0 (Version None)
Quarter: 2005Q4

REPORT INFORMATION
  Report Type: 
  Country: None (occurrence: None)
  Receive Date: 20051215
  Receipt Date: 20051214
  Transmission Date: 20060501
  Serious: Yes (Hospitalization)
  Sender: FDA-Public Use
  Company Number: 200514858EU

PATIENT
  Age: 77 Year
  Sex: Male

DRUGS (5)
  1. NICODERM [Suspect]
     Dosage: 7MG ALTERNATE DAYS
     Route: 062
     Dates: start: 20050910
  2. ASPIRIN [Concomitant]
     Dates: start: 20050701
  3. ANTI-CHOLESTEROL MEDICATION [Concomitant]
     Dates: start: 20050701
  4. METOPROLOL TARTRATE [Concomitant]
     Dates: start: 20050701
  5. RAMIPRIL [Concomitant]
     Dates: start: 20050701

REACTIONS (4)
  - DYSSTASIA [None]
  - NAUSEA [None]
  - PYREXIA [None]
  - TREMOR [None]
